FAERS Safety Report 7269403-4 (Version None)
Quarter: 2010Q4

REPORT INFORMATION
  Report Type: 
  Country: None (occurrence: None)
  Receive Date: 20101130
  Receipt Date: 20091207
  Transmission Date: 20110411
  Serious: Yes (Hospitalization)
  Sender: FDA-Public Use
  Company Number: 2009SP040687

PATIENT
  Age: 21 Year
  Sex: Female
  Weight: 72.5755 kg

DRUGS (1)
  1. NUVARING [Suspect]
     Indication: CONTRACEPTION
     Dates: start: 20071010, end: 20071101

REACTIONS (1)
  - SUPERIOR SAGITTAL SINUS THROMBOSIS [None]
